FAERS Safety Report 4436678-6 (Version None)
Quarter: 2004Q3

REPORT INFORMATION
  Report Type: 
  Country: None (occurrence: None)
  Receive Date: 20040728
  Receipt Date: 20040520
  Transmission Date: 20050211
  Serious: Yes (Hospitalization)
  Sender: FDA-Public Use
  Company Number: 203680

PATIENT
  Age: 73 Year
  Sex: Male
  Weight: 45.8 kg

DRUGS (13)
  1. RITUXAN [Suspect]
     Indication: B-CELL LYMPHOMA
     Dosage: 750 MG, SINGLE, INTRAVENOUS
     Route: 042
     Dates: start: 20031203, end: 20031203
  2. BENADRYL [Concomitant]
  3. TYLENOL [Concomitant]
  4. ALLOPURINOL [Concomitant]
  5. ASPIRIN [Concomitant]
  6. ENOXAPARIN SODIUM [Concomitant]
  7. GLUCOSAMINE/CHONDROITIN (GLUCOSAMINE, CHONDROITIN SULFATE) [Concomitant]
  8. LEVOFLOXACIN [Concomitant]
  9. LEVOTHYROXINE (LEVOTHYROXINE SODIUM) [Concomitant]
  10. PIPERACILLIN + TAZOBACTAM (TAZOBACTAM, PIPERACILLIN SODIUM) [Concomitant]
  11. TMP-SMX (SULFAMETHOXAZOLE, TRIMETHOPRIM) [Concomitant]
  12. VENLAFAXINE (VENLAFAXINE HYDROCHLORIDE) [Concomitant]
  13. SODIUM CHLORIDE 0.9% [Concomitant]

REACTIONS (5)
  - BLOOD PRESSURE DECREASED [None]
  - CHILLS [None]
  - DYSPNOEA [None]
  - HOT FLUSH [None]
  - OXYGEN SATURATION DECREASED [None]
